FAERS Safety Report 24427277 (Version 2)
Quarter: 2024Q4

REPORT INFORMATION
  Report Type: Spontaneous
  Country: US (occurrence: US)
  Receive Date: 20241011
  Receipt Date: 20241212
  Transmission Date: 20250114
  Serious: No
  Sender: SANOFI AVENTIS
  Company Number: US-SA-2024SA193700

PATIENT
  Age: 23 Year
  Sex: Female

DRUGS (1)
  1. DUPIXENT [Suspect]
     Active Substance: DUPILUMAB
     Indication: Dermatitis atopic
     Dosage: 300MG, QOW
     Route: 058

REACTIONS (6)
  - Skin fissures [Unknown]
  - Injection site inflammation [Unknown]
  - Injection site pain [Unknown]
  - Malaise [Recovering/Resolving]
  - Product dose omission in error [Recovering/Resolving]
  - Inappropriate schedule of product administration [Recovering/Resolving]
